FAERS Safety Report 9159465 (Version 1)
Quarter: 2013Q1

REPORT INFORMATION
  Report Type: Spontaneous
  Country: US (occurrence: None)
  Receive Date: 20130312
  Receipt Date: 20130312
  Transmission Date: 20140127
  Serious: Yes (Other)
  Sender: FDA-Public Use
  Company Number: None

PATIENT
  Age: 68 Year
  Sex: Male
  Weight: 65.77 kg

DRUGS (1)
  1. FENOFIBRATE [Suspect]
     Indication: BLOOD CHOLESTEROL
     Route: 048
     Dates: start: 20130130, end: 20130216

REACTIONS (7)
  - Swollen tongue [None]
  - VIIth nerve paralysis [None]
  - Muscle spasms [None]
  - Dyspnoea [None]
  - Vision blurred [None]
  - Ageusia [None]
  - Rhinorrhoea [None]
